FAERS Safety Report 18169223 (Version 1)
Quarter: 2020Q3

REPORT INFORMATION
  Report Type: Spontaneous
  Country: IN (occurrence: IN)
  Receive Date: 20200819
  Receipt Date: 20200819
  Transmission Date: 20201103
  Serious: Yes (Other)
  Sender: FDA-Public Use
  Company Number: IN-CELLTRION-2020-IN-000112

PATIENT
  Age: 44 Year
  Sex: Male

DRUGS (4)
  1. NITRATES (UNSPECIFIED) [Concomitant]
     Active Substance: UNSPECIFIED INGREDIENT
  2. STATIN MEDICATION [Suspect]
     Active Substance: UNSPECIFIED INGREDIENT
  3. CLOPIDOGREL [Suspect]
     Active Substance: CLOPIDOGREL BISULFATE
     Indication: ANGINA UNSTABLE
  4. BETA?BLOCKER(UNSPECIFIED) [Concomitant]
     Active Substance: UNSPECIFIED INGREDIENT

REACTIONS (3)
  - Haemolytic uraemic syndrome [Unknown]
  - Renal failure [Unknown]
  - Thrombotic microangiopathy [Unknown]
